FAERS Safety Report 4705766-9 (Version None)
Quarter: 2005Q3

REPORT INFORMATION
  Report Type: 
  Country: None (occurrence: None)
  Receive Date: 20050701
  Receipt Date: 20050110
  Transmission Date: 20060218
  Serious: Yes (Life-Threatening, Hospitalization, Other)
  Sender: FDA-Public Use
  Company Number: DE-MERCK-0501DEU00146

PATIENT
  Age: 65 Year
  Sex: Female
  Weight: 79 kg

DRUGS (20)
  1. VIOXX [Suspect]
     Indication: FIBROMYALGIA
     Route: 048
     Dates: start: 20000107
  2. VIOXX [Suspect]
     Route: 048
     Dates: end: 20011203
  3. VIOXX [Suspect]
     Route: 048
     Dates: end: 20020807
  4. VIOXX [Suspect]
     Route: 048
     Dates: end: 20041002
  5. VIOXX [Suspect]
     Route: 048
     Dates: start: 20000901, end: 20030301
  6. VIOXX [Suspect]
     Indication: OSTEOARTHRITIS
     Route: 048
     Dates: start: 20000107
  7. VIOXX [Suspect]
     Route: 048
     Dates: end: 20011203
  8. VIOXX [Suspect]
     Route: 048
     Dates: end: 20020807
  9. VIOXX [Suspect]
     Route: 048
     Dates: end: 20041002
  10. VIOXX [Suspect]
     Route: 048
     Dates: start: 20000901, end: 20030301
  11. METFORMIN HYDROCHLORIDE [Concomitant]
     Indication: DIABETES MELLITUS
     Route: 048
     Dates: start: 19840101
  12. INDOMETHACIN [Concomitant]
     Indication: OSTEOARTHRITIS
     Route: 048
  13. INDOMETHACIN [Concomitant]
     Route: 048
  14. SOTALOL HYDROCHLORIDE [Concomitant]
     Indication: ARRHYTHMIA
     Route: 048
     Dates: start: 20010325
  15. ATORVASTATIN CALCIUM [Concomitant]
     Indication: HYPERLIPIDAEMIA
     Route: 048
     Dates: start: 20000501
  16. AMITRIPTYLINE HYDROCHLORIDE [Concomitant]
     Indication: DEPRESSION
     Route: 048
     Dates: start: 20000501
  17. ENALAPRIL MALEATE [Concomitant]
     Route: 065
  18. EQUILIN SODIUM SULFATE AND ESTRONE SODIUM SULFATE [Concomitant]
     Route: 048
  19. HYDROCHLOROTHIAZIDE AND TRIAMTERENE [Concomitant]
     Route: 065
  20. CAPTOPRIL [Concomitant]
     Indication: HYPERTENSION
     Route: 065
     Dates: start: 20000501, end: 20011001

REACTIONS (13)
  - ADVERSE EVENT [None]
  - ANGINA PECTORIS [None]
  - BACK PAIN [None]
  - DRUG HYPERSENSITIVITY [None]
  - DRUG INEFFECTIVE [None]
  - DUODENITIS [None]
  - DYSPNOEA EXERTIONAL [None]
  - FIBROMYALGIA [None]
  - HELICOBACTER GASTRITIS [None]
  - HYPERHIDROSIS [None]
  - HYPERTENSIVE CRISIS [None]
  - MYOCARDIAL INFARCTION [None]
  - VENTRICULAR HYPERTROPHY [None]
